FAERS Safety Report 14347243 (Version 1)
Quarter: 2018Q1

REPORT INFORMATION
  Report Type: Spontaneous
  Country: US (occurrence: US)
  Receive Date: 20180102
  Receipt Date: 20180102
  Transmission Date: 20180509
  Serious: Yes (Death)
  Sender: FDA-Public Use
  Company Number: None

PATIENT
  Age: 91 Year
  Sex: Female
  Weight: 65.25 kg

DRUGS (12)
  1. DILTIAZEM. [Concomitant]
     Active Substance: DILTIAZEM
  2. AMIODARONE [Concomitant]
     Active Substance: AMIODARONE
  3. COLACE [Concomitant]
     Active Substance: DOCUSATE SODIUM
  4. PREDNISONE. [Concomitant]
     Active Substance: PREDNISONE
  5. MVI [Concomitant]
     Active Substance: VITAMINS
  6. PANTOPRAZOLE [Concomitant]
     Active Substance: PANTOPRAZOLE
  7. XARELTO [Suspect]
     Active Substance: RIVAROXABAN
     Indication: ATRIAL FIBRILLATION
  8. POTASSIUM CHLORIDE. [Concomitant]
     Active Substance: POTASSIUM CHLORIDE
  9. AREDS [Concomitant]
     Active Substance: MINERALS\VITAMINS
  10. BUPROPION. [Concomitant]
     Active Substance: BUPROPION
  11. FERROUS SULFATE. [Concomitant]
     Active Substance: FERROUS SULFATE
  12. LEVOTHYROXINE. [Concomitant]
     Active Substance: LEVOTHYROXINE

REACTIONS (7)
  - Renal impairment [None]
  - Abdominal pain [None]
  - Vomiting [None]
  - Nausea [None]
  - Intestinal ischaemia [None]
  - Sinus node dysfunction [None]
  - Thrombosis [None]

NARRATIVE: CASE EVENT DATE: 20170808
